FAERS Safety Report 23509170 (Version 5)
Quarter: 2024Q1

REPORT INFORMATION
  Report Type: Spontaneous
  Country: US (occurrence: US)
  Receive Date: 20240210
  Receipt Date: 20240312
  Transmission Date: 20240409
  Serious: No
  Sender: FDA-Public Use
  Company Number: US-SA-SAC20240201001415

PATIENT
  Age: 72 Year
  Sex: Female
  Weight: 104 kg

DRUGS (9)
  1. DUPIXENT [Suspect]
     Active Substance: DUPILUMAB
     Indication: Asthma
     Dosage: 300 MG, QOW
     Route: 058
     Dates: start: 20240104
  2. DUPIXENT [Suspect]
     Active Substance: DUPILUMAB
     Indication: Dermatitis atopic
  3. DUPIXENT [Suspect]
     Active Substance: DUPILUMAB
     Indication: Eczema
  4. DUPIXENT [Suspect]
     Active Substance: DUPILUMAB
     Indication: Illness
  5. CAPRYLIC ACID [Concomitant]
     Active Substance: CAPRYLIC ACID
     Dosage: UNK
  6. ARCTOSTAPHYLOS UVA-URSI LEAF [Concomitant]
     Active Substance: ARCTOSTAPHYLOS UVA-URSI LEAF
  7. TRAVACOR [Concomitant]
  8. ADRECOR [Concomitant]
  9. MEGASPOREBIOTIC [Concomitant]
     Dosage: UNK

REACTIONS (12)
  - Infection [Unknown]
  - Productive cough [Unknown]
  - Throat tightness [Unknown]
  - Dyspnoea [Unknown]
  - Chest discomfort [Unknown]
  - Lung disorder [Unknown]
  - Sleep disorder due to a general medical condition [Unknown]
  - Fatigue [Unknown]
  - Oropharyngeal pain [Unknown]
  - Injection site pain [Unknown]
  - Injection site bruising [Unknown]
  - Injection site swelling [Unknown]

NARRATIVE: CASE EVENT DATE: 20240215
